FAERS Safety Report 8414347-5 (Version None)
Quarter: 2012Q2

REPORT INFORMATION
  Report Type: 
  Country: None (occurrence: None)
  Receive Date: 20120323
  Receipt Date: 20111213
  Transmission Date: 20120825
  Serious: Yes (Hospitalization)
  Sender: FDA-Public Use
  Company Number: 163-21880-11121569

PATIENT
  Age: 56 Year
  Sex: Male
  Weight: 93.8 kg

DRUGS (13)
  1. ACYCLOVIR [Concomitant]
  2. FENTANYL [Concomitant]
  3. GABAPENTIN [Concomitant]
  4. ATIVAN [Concomitant]
  5. NEXIUM [Concomitant]
  6. AMBIEN [Concomitant]
  7. DEXAMETHASONE [Suspect]
     Indication: MULTIPLE MYELOMA
     Dosage: 40 MG, WEEKLY
     Dates: start: 20111110
  8. FRAGMIN (HEPARIN-F-RACTINO, SODIUM SALT) [Concomitant]
  9. MLN-9708 (PROTEASE INHIBITORS) [Concomitant]
  10. BACTRIM SS (BACTRIM) [Concomitant]
  11. MULTIVITAMIN [Concomitant]
  12. REVLIMID [Suspect]
     Indication: MULTIPLE MYELOMA
     Dosage: 25 MG, 1 IN 1 D, PO
     Route: 048
     Dates: start: 20111110
  13. VICODIN [Concomitant]

REACTIONS (2)
  - PULMONARY EMBOLISM [None]
  - DEEP VEIN THROMBOSIS [None]
